FAERS Safety Report 4737302-5 (Version None)
Quarter: 2005Q3

REPORT INFORMATION
  Report Type: 
  Country: None (occurrence: None)
  Receive Date: 20050808
  Receipt Date: 20040909
  Transmission Date: 20060218
  Serious: Yes (Hospitalization)
  Sender: FDA-Public Use
  Company Number: PHHO2004BE12603

PATIENT
  Age: 59 Year
  Sex: Male
  Weight: 69 kg

DRUGS (4)
  1. PENSTAPHO [Concomitant]
  2. NEORAL [Concomitant]
     Indication: LIVER TRANSPLANT
     Dosage: 275 MG/DAILY
     Route: 048
     Dates: start: 20030817
  3. SIMULECT [Suspect]
     Indication: LIVER TRANSPLANT
     Dosage: 20 MG, DAY 0
     Route: 042
     Dates: start: 20030817, end: 20030817
  4. SIMULECT [Suspect]
     Dosage: 20 MG, DAY 4
     Route: 042
     Dates: start: 20030820, end: 20030820

REACTIONS (2)
  - ARTHRITIS [None]
  - STAPHYLOCOCCAL SEPSIS [None]
